FAERS Safety Report 14056723 (Version 2)
Quarter: 2017Q4

REPORT INFORMATION
  Report Type: Spontaneous
  Country: SE (occurrence: SE)
  Receive Date: 20171006
  Receipt Date: 20171011
  Transmission Date: 20180321
  Serious: Yes (Hospitalization)
  Sender: FDA-Public Use
  Company Number: SE-SA-2017SA187186

PATIENT
  Age: 29 Year
  Sex: Female

DRUGS (7)
  1. NEOVLETTA [Concomitant]
     Active Substance: ETHINYL ESTRADIOL\LEVONORGESTREL
     Indication: CONTRACEPTION
     Route: 065
     Dates: start: 2009
  2. LANTUS [Suspect]
     Active Substance: INSULIN GLARGINE
     Indication: TYPE 1 DIABETES MELLITUS
     Route: 051
     Dates: start: 20110610, end: 20160503
  3. NOVORAPID [Concomitant]
     Active Substance: INSULIN ASPART
     Indication: TYPE 1 DIABETES MELLITUS
     Dosage: DOSE:7 UNIT(S)
     Route: 065
     Dates: start: 2009
  4. DIFFERIN [Concomitant]
     Active Substance: ADAPALENE
     Indication: ACNE
     Route: 065
     Dates: start: 20160526
  5. ZOPIKLON [Concomitant]
     Active Substance: ZOPICLONE
     Dosage: FREQUENCY: FOR THE NIGHT WHEN NEEDED
     Route: 065
     Dates: start: 20160303
  6. TOUJEO [Suspect]
     Active Substance: INSULIN GLARGINE
     Indication: TYPE 1 DIABETES MELLITUS
     Dosage: DOSE: 26 E
     Route: 051
     Dates: start: 20160503, end: 20170627
  7. SOLOSTAR [Suspect]
     Active Substance: DEVICE
     Indication: TYPE 1 DIABETES MELLITUS
     Dates: start: 20160503, end: 20170627

REACTIONS (1)
  - Diabetic mastopathy [Not Recovered/Not Resolved]
